FAERS Safety Report 20021791 (Version 1)
Quarter: 2021Q4

REPORT INFORMATION
  Report Type: Spontaneous
  Country: CN (occurrence: CN)
  Receive Date: 20211101
  Receipt Date: 20211101
  Transmission Date: 20220303
  Serious: Yes (Other)
  Sender: FDA-Public Use
  Company Number: CN-BAXTER-2021BAX033727

PATIENT
  Age: 45 Year
  Sex: Female
  Weight: 50 kg

DRUGS (2)
  1. MANNITOL [Suspect]
     Active Substance: MANNITOL
     Indication: Dizziness
     Route: 041
     Dates: start: 20211012, end: 20211012
  2. MANNITOL [Suspect]
     Active Substance: MANNITOL
     Indication: Nausea
     Dosage: DOSE RE-INTRODUCED
     Route: 041

REACTIONS (2)
  - Flushing [Unknown]
  - Rash [Recovering/Resolving]

NARRATIVE: CASE EVENT DATE: 20211012
